FAERS Safety Report 12486685 (Version 1)
Quarter: 2016Q2

REPORT INFORMATION
  Report Type: Report from Study
  Country: FI (occurrence: FI)
  Receive Date: 20160621
  Receipt Date: 20160621
  Transmission Date: 20160815
  Serious: Yes (Hospitalization, Other)
  Sender: FDA-Public Use
  Company Number: FI-ELI_LILLY_AND_COMPANY-FI201508001372

PATIENT
  Age: 88 Year
  Sex: Female

DRUGS (6)
  1. FORSTEO [Suspect]
     Active Substance: TERIPARATIDE
     Indication: OSTEOPOROSIS
     Dosage: 20 UG, QD
     Route: 058
  2. OXYCODONE [Suspect]
     Active Substance: OXYCODONE
     Indication: PRODUCT USED FOR UNKNOWN INDICATION
     Dosage: UNK, UNKNOWN
     Route: 065
  3. CORTISONE [Suspect]
     Active Substance: CORTISONE\HYDROCORTISONE
     Indication: ASTHMA
     Dosage: UNK, UNKNOWN
     Route: 065
     Dates: start: 1970
  4. OXYNORM [Suspect]
     Active Substance: OXYCODONE HYDROCHLORIDE
     Dosage: UNK UNK, UNKNOWN
     Route: 065
  5. NORSPAN [Suspect]
     Active Substance: BUPRENORPHINE
     Indication: PRODUCT USED FOR UNKNOWN INDICATION
     Dosage: 40 UG, UNKNOWN
     Route: 065
  6. OXYNORM [Suspect]
     Active Substance: OXYCODONE HYDROCHLORIDE
     Indication: PRODUCT USED FOR UNKNOWN INDICATION
     Dosage: 5 MG, TID
     Route: 065

REACTIONS (21)
  - Visual impairment [Unknown]
  - Wound infection [Unknown]
  - Diarrhoea [Recovering/Resolving]
  - Diarrhoea [Unknown]
  - Fall [Unknown]
  - Anaemia [Unknown]
  - Fatigue [Unknown]
  - Dizziness [Unknown]
  - Spinal fracture [Unknown]
  - Lymphadenopathy [Unknown]
  - Foot fracture [Unknown]
  - Hypotension [Unknown]
  - Wound [Unknown]
  - Coccydynia [Unknown]
  - Fall [Unknown]
  - Drug dependence [Unknown]
  - Mass [Unknown]
  - Fall [Unknown]
  - Wound [Unknown]
  - Confusional state [Unknown]
  - Skin disorder [Unknown]

NARRATIVE: CASE EVENT DATE: 20150401
